FAERS Safety Report 4461651-1 (Version None)
Quarter: 2004Q3

REPORT INFORMATION
  Report Type: 
  Country: None (occurrence: None)
  Receive Date: 20040927
  Receipt Date: 20040927
  Transmission Date: 20050211
  Serious: Yes (Death)
  Sender: FDA-Public Use
  Company Number: None

PATIENT
  Age: 59 Year
  Sex: Male
  Weight: 93.441 kg

DRUGS (3)
  1. MOCLOBEMIDE [Suspect]
     Indication: BIPOLAR DISORDER
  2. CLOMIPRAMINE HCL [Suspect]
  3. TRAMADOL HCL [Concomitant]

REACTIONS (4)
  - CHILLS [None]
  - HYPERHIDROSIS [None]
  - MALAISE [None]
  - URINARY INCONTINENCE [None]
